FAERS Safety Report 17874949 (Version 3)
Quarter: 2022Q3

REPORT INFORMATION
  Report Type: Spontaneous
  Country: US (occurrence: US)
  Receive Date: 20200609
  Receipt Date: 20220816
  Transmission Date: 20221027
  Serious: Yes (Hospitalization, Disabling, Other)
  Sender: FDA-Public Use
  Company Number: US-PFIZER INC-2020222933

PATIENT
  Age: 42 Year
  Sex: Female

DRUGS (1)
  1. XELJANZ XR [Suspect]
     Active Substance: TOFACITINIB CITRATE
     Indication: Keratitis
     Dosage: 11 MG, 1X/DAY
     Route: 048

REACTIONS (7)
  - Autonomic neuropathy [Unknown]
  - Postural orthostatic tachycardia syndrome [Unknown]
  - Loss of personal independence in daily activities [Unknown]
  - Off label use [Unknown]
  - Drug ineffective for unapproved indication [Unknown]
  - Condition aggravated [Unknown]
  - Pain [Not Recovered/Not Resolved]
